FAERS Safety Report 5945353-8 (Version None)
Quarter: 2008Q4

REPORT INFORMATION
  Report Type: 
  Country: None (occurrence: None)
  Receive Date: 20081107
  Receipt Date: 20081029
  Transmission Date: 20090506
  Serious: Yes (Disabling, Other)
  Sender: FDA-Public Use
  Company Number: US-PFIZER INC-2008084981

PATIENT
  Sex: Male
  Weight: 113.4 kg

DRUGS (3)
  1. LIPITOR [Suspect]
     Indication: BLOOD CHOLESTEROL
     Dates: start: 19990101
  2. NORVASC [Concomitant]
     Indication: BLOOD PRESSURE
  3. SYNTHROID [Concomitant]

REACTIONS (8)
  - ABASIA [None]
  - ACTIVITIES OF DAILY LIVING IMPAIRED [None]
  - ASTHENIA [None]
  - DYSSTASIA [None]
  - FOOT DEFORMITY [None]
  - ILL-DEFINED DISORDER [None]
  - MYALGIA [None]
  - UNEVALUABLE EVENT [None]
